FAERS Safety Report 26022634 (Version 2)
Quarter: 2025Q4

REPORT INFORMATION
  Report Type: Report from Study
  Country: MX (occurrence: MX)
  Receive Date: 20251110
  Receipt Date: 20251123
  Transmission Date: 20260117
  Serious: Yes (Other)
  Sender: ABBVIE
  Company Number: MX-ABBVIE-6537985

PATIENT
  Age: 68 Year
  Sex: Female
  Weight: 56 kg

DRUGS (10)
  1. VENCLEXTA [Suspect]
     Active Substance: VENETOCLAX
     Indication: Chronic lymphocytic leukaemia
     Dosage: LAST ADMIN DATE:2025?FORM STRENGTH: 100 MILLIGRAM
     Route: 048
     Dates: start: 20250727
  2. VENCLEXTA [Suspect]
     Active Substance: VENETOCLAX
     Indication: Chronic lymphocytic leukaemia
     Dosage: VENCLEXTA100 MG
     Route: 048
     Dates: start: 20250824, end: 20251022
  3. VENCLEXTA [Suspect]
     Active Substance: VENETOCLAX
     Indication: Chronic lymphocytic leukaemia
     Dosage: VENCLEXTA100 MG
     Route: 048
     Dates: start: 20250923
  4. LEVOTHYROXINE [Concomitant]
     Active Substance: LEVOTHYROXINE
     Indication: Hypothyroidism
     Dosage: 100 ?G/ 20 ?G ONE TABLET EVERY 24 HOURS FROM M-F AND HALF A ?TABLET EVERY 24 HOURS SAT AND SUN
     Route: 048
  5. LAMOTRIGINE [Concomitant]
     Active Substance: LAMOTRIGINE
     Indication: Taeniasis
     Dosage: 100 MG ONE TABLET EVERY 24 ?HOURS
     Route: 048
  6. PROPAFENONE [Concomitant]
     Active Substance: PROPAFENONE
     Indication: Tachycardia
     Dosage: 150 MG ONE TABLET EVERY 24 HOURS AT NIGHT.
     Route: 048
  7. XARELTO [Concomitant]
     Active Substance: RIVAROXABAN
     Indication: Product used for unknown indication
     Dosage: 20 MG ONE TABLET EVERY 24 ?HOURS AT NIGHT.
     Route: 048
  8. Nucleo cmp forte [Concomitant]
     Indication: Neuropathy peripheral
     Dosage: 5 MG/ 3 MG ONE CAPSULE EVERY 24 HOURS FOR 3 MONTHS
     Route: 048
  9. GABAPENTIN [Concomitant]
     Active Substance: GABAPENTIN
     Indication: Adjuvant therapy
     Dosage: 300 MG ONE TABLET EVERY 24 HOURS AT NIGHT?ADJUNCT IN BENZODIAZEPINE WITHDRAWAL
     Route: 048
  10. CLONAZEPAM [Concomitant]
     Active Substance: CLONAZEPAM
     Indication: Anxiety disorder
     Dosage: 2 MG HALF TABLET EVERY 24 ?HOURS AT NIGHT.
     Route: 048

REACTIONS (16)
  - Lymphadenopathy [Not Recovered/Not Resolved]
  - Diarrhoea [Recovering/Resolving]
  - Nausea [Recovering/Resolving]
  - Constipation [Recovering/Resolving]
  - Platelet count decreased [Unknown]
  - Weight decreased [Not Recovered/Not Resolved]
  - Body height decreased [Not Recovered/Not Resolved]
  - Drug ineffective [Unknown]
  - Urticaria [Recovering/Resolving]
  - Drug hypersensitivity [Unknown]
  - Abdominal distension [Not Recovered/Not Resolved]
  - Flatulence [Not Recovered/Not Resolved]
  - Pruritus [Recovering/Resolving]
  - Flatulence [Unknown]
  - Amylase increased [Unknown]
  - Lipase increased [Unknown]

NARRATIVE: CASE EVENT DATE: 20250101
